FAERS Safety Report 7451970-9 (Version None)
Quarter: 2011Q2

REPORT INFORMATION
  Report Type: 
  Country: None (occurrence: None)
  Receive Date: 20110502
  Receipt Date: 20110428
  Transmission Date: 20111010
  Serious: Yes (Other)
  Sender: FDA-Public Use
  Company Number: GXKR2011DE01560

PATIENT
  Sex: Female
  Weight: 66 kg

DRUGS (6)
  1. NASIC [Concomitant]
     Indication: SEASONAL ALLERGY
     Dosage: 1 DF, QD (5. TO 6. GESTATIONAL WEEK)
     Route: 045
  2. FOLIC ACID [Concomitant]
     Indication: PROPHYLAXIS OF NEURAL TUBE DEFECT
     Dosage: 0.4 MG, QD
     Route: 048
  3. PAROXETINE HCL [Suspect]
     Indication: ANXIETY DISORDER
     Dosage: 20 MG DAILY (0. - 7. GESTATIONAL WEEK)
     Route: 048
  4. LORAZEPAM [Suspect]
     Indication: SLEEP DISORDER
     Dosage: 1.25 MG DAILY (5. TO 6. GESTATIONAL WEEK)
     Route: 048
  5. CETIRIZINE HCL [Concomitant]
     Indication: SEASONAL ALLERGY
     Dosage: 10 MG, QD (5. TO 6. GESTATIONAL WEEK)
     Route: 048
  6. BUSCOPAN PLUS [Suspect]
     Indication: PAIN
     Dosage: 20 MG AND 1000 MG DAILY (6. GESTATIONAL WEEK)
     Route: 048

REACTIONS (2)
  - DRUG EXPOSURE DURING PREGNANCY [None]
  - ABORTION SPONTANEOUS [None]
